FAERS Safety Report 20229395 (Version 1)
Quarter: 2021Q4

REPORT INFORMATION
  Report Type: Spontaneous
  Country: DK (occurrence: DK)
  Receive Date: 20211225
  Receipt Date: 20211225
  Transmission Date: 20220303
  Serious: Yes (Other)
  Sender: FDA-Public Use
  Company Number: DK-TEVA-2021-DK-1991375

PATIENT
  Sex: Female

DRUGS (2)
  1. PREDNISOLONE [Interacting]
     Active Substance: PREDNISOLONE
     Dosage: 37.5 MILLIGRAM DAILY;
     Route: 065
  2. MOXIFLOXACIN [Suspect]
     Active Substance: MOXIFLOXACIN
     Indication: Pneumonia
     Route: 065

REACTIONS (1)
  - Drug interaction [Unknown]
